FAERS Safety Report 24846058 (Version 1)
Quarter: 2025Q1

REPORT INFORMATION
  Report Type: Spontaneous
  Country: US (occurrence: US)
  Receive Date: 20250115
  Receipt Date: 20250115
  Transmission Date: 20250409
  Serious: No
  Sender: BIOGEN
  Company Number: US-BIOGEN-2023BI01201252

PATIENT
  Sex: Female

DRUGS (1)
  1. VUMERITY [Suspect]
     Active Substance: DIROXIMEL FUMARATE
     Indication: Multiple sclerosis
     Route: 050
     Dates: start: 20211221

REACTIONS (4)
  - Product dose omission in error [Unknown]
  - T-lymphocyte count decreased [Unknown]
  - Pruritus [Unknown]
  - Lymphocyte count decreased [Unknown]
